FAERS Safety Report 8437572-6 (Version None)
Quarter: 2012Q2

REPORT INFORMATION
  Report Type: 
  Country: None (occurrence: None)
  Receive Date: 20120614
  Receipt Date: 20120411
  Transmission Date: 20120825
  Serious: No
  Sender: FDA-Public Use
  Company Number: US-AMGEN-USASP2012022957

PATIENT
  Age: 84 Year
  Sex: Female

DRUGS (10)
  1. OSTEO BI-FLEX [Concomitant]
     Dosage: UNK
     Route: 048
  2. ASPIRIN [Concomitant]
     Dosage: 2 UNK, UNK
     Route: 048
  3. MULTIVITAMIN                       /00097801/ [Concomitant]
     Dosage: UNK
     Route: 048
  4. PROLIA [Suspect]
     Indication: OSTEOPOROSIS
     Dosage: 60 MG, Q6MO
     Route: 058
     Dates: start: 20111205
  5. NAPROXEN (ALEVE) [Concomitant]
     Dosage: UNK
     Route: 048
  6. BAYER EXTRA STRENGTH BACK AND BODY PAIN [Concomitant]
     Dosage: UNK
     Route: 048
  7. MUSCLE RELAXANTS [Concomitant]
     Dosage: UNK
     Route: 048
  8. STOOL SOFTENER [Concomitant]
     Dosage: UNK
     Route: 048
  9. PROLIA [Suspect]
     Indication: BACK PAIN
  10. HYDROCODONE [Concomitant]
     Dosage: UNK
     Route: 048

REACTIONS (4)
  - SKIN EXFOLIATION [None]
  - DRY SKIN [None]
  - SKIN DISCOLOURATION [None]
  - RASH [None]
